FAERS Safety Report 9058663 (Version 1)
Quarter: 2013Q1

REPORT INFORMATION
  Report Type: Spontaneous
  Country: US (occurrence: US)
  Receive Date: 20130204
  Receipt Date: 20130204
  Transmission Date: 20140127
  Serious: No
  Sender: FDA-Public Use
  Company Number: US-GLAXOSMITHKLINE-A1004375A

PATIENT
  Sex: Female

DRUGS (1)
  1. HORIZANT [Suspect]
     Indication: PAIN
     Dosage: 1TAB PER DAY
     Route: 048

REACTIONS (1)
  - Drug ineffective [Recovering/Resolving]
